FAERS Safety Report 14115281 (Version 1)
Quarter: 2017Q4

REPORT INFORMATION
  Report Type: Spontaneous
  Country: GB (occurrence: GB)
  Receive Date: 20171023
  Receipt Date: 20171023
  Transmission Date: 20180321
  Serious: Yes (Death, Hospitalization)
  Sender: FDA-Public Use
  Company Number: GB-TEVA-815728ACC

PATIENT
  Age: 85 Year

DRUGS (6)
  1. ATENOLOL. [Concomitant]
     Active Substance: ATENOLOL
  2. GLYCERYL TRINITRATE [Concomitant]
     Active Substance: NITROGLYCERIN
     Route: 060
  3. LISINOPRIL. [Suspect]
     Active Substance: LISINOPRIL
     Dosage: 2.5 MILLIGRAM DAILY;
     Route: 048
     Dates: end: 20170814
  4. OMEPRAZOLE. [Suspect]
     Active Substance: OMEPRAZOLE
     Dosage: 40 MILLIGRAM DAILY;
     Route: 048
     Dates: end: 20170814
  5. XARELTO [Suspect]
     Active Substance: RIVAROXABAN
     Indication: PULMONARY EMBOLISM
     Dosage: 30 MILLIGRAM DAILY;
     Route: 048
     Dates: start: 20170802, end: 20170814
  6. ZEROBASE [Concomitant]

REACTIONS (3)
  - Acute kidney injury [Fatal]
  - Hyponatraemia [Not Recovered/Not Resolved]
  - Rectal haemorrhage [Recovered/Resolved]

NARRATIVE: CASE EVENT DATE: 20170814
